FAERS Safety Report 5707204-6 (Version None)
Quarter: 2008Q2

REPORT INFORMATION
  Report Type: 
  Country: None (occurrence: None)
  Receive Date: 20080416
  Receipt Date: 20080409
  Transmission Date: 20081010
  Serious: Yes (Death, Hospitalization)
  Sender: FDA-Public Use
  Company Number: PE-AVENTIS-200813294GDDC

PATIENT
  Age: 80 Year
  Sex: Male

DRUGS (1)
  1. ARAVA [Suspect]
     Indication: RHEUMATOID ARTHRITIS
     Dates: start: 20060811, end: 20070709

REACTIONS (2)
  - HEPATIC FAILURE [None]
  - PNEUMONIA [None]
